FAERS Safety Report 5827811-X (Version None)
Quarter: 2008Q3

REPORT INFORMATION
  Report Type: 
  Country: None (occurrence: None)
  Receive Date: 20080730
  Receipt Date: 20080724
  Transmission Date: 20090109
  Serious: Yes (Hospitalization, Other)
  Sender: FDA-Public Use
  Company Number: US-MERCK-0805USA00911

PATIENT
  Age: 62 Year
  Sex: Female
  Weight: 49 kg

DRUGS (7)
  1. FOSAMAX [Suspect]
     Indication: BONE DISORDER
     Route: 048
     Dates: start: 19970201, end: 20011001
  2. FOSAMAX [Suspect]
     Route: 048
     Dates: start: 20011201, end: 20060601
  3. FOSAMAX [Suspect]
     Indication: OSTEOPOROSIS
     Route: 048
     Dates: start: 19970201, end: 20011001
  4. FOSAMAX [Suspect]
     Route: 048
     Dates: start: 20011201, end: 20060601
  5. FOSAMAX PLUS D [Suspect]
     Indication: BONE DISORDER
     Route: 048
  6. FOSAMAX PLUS D [Suspect]
     Indication: OSTEOPOROSIS
     Route: 048
  7. LIPITOR [Concomitant]
     Indication: BLOOD CHOLESTEROL INCREASED
     Route: 065
     Dates: start: 20030101, end: 20080401

REACTIONS (27)
  - ADVERSE DRUG REACTION [None]
  - ANXIETY [None]
  - ARTHROPATHY [None]
  - ATRIAL FIBRILLATION [None]
  - BRONCHITIS [None]
  - CEREBRAL ISCHAEMIA [None]
  - CONTUSION [None]
  - CORONARY ARTERY DISEASE [None]
  - CYST [None]
  - DYSGEUSIA [None]
  - EAR DISORDER [None]
  - EAR INFECTION [None]
  - EMPHYSEMA [None]
  - HYPERKALAEMIA [None]
  - HYPERTENSION [None]
  - LOOSE TOOTH [None]
  - OSTEOMYELITIS [None]
  - OSTEONECROSIS [None]
  - OTITIS MEDIA [None]
  - PALPITATIONS [None]
  - PARAESTHESIA [None]
  - SINUSITIS [None]
  - SKIN INJURY [None]
  - TENDONITIS [None]
  - TOOTH DISORDER [None]
  - TRANSIENT ISCHAEMIC ATTACK [None]
  - UPPER RESPIRATORY TRACT INFECTION [None]
